FAERS Safety Report 4575572-7 (Version None)
Quarter: 2005Q1

REPORT INFORMATION
  Report Type: 
  Country: None (occurrence: None)
  Receive Date: 20050128
  Receipt Date: 20050128
  Transmission Date: 20050727
  Serious: Yes (Death)
  Sender: FDA-Public Use
  Company Number: None

PATIENT
  Sex: Male
  Weight: 84 kg

DRUGS (1)
  1. AMIODARONE  150 MG [Suspect]
     Indication: ATRIAL FIBRILLATION
     Dates: start: 20041024, end: 20041027

REACTIONS (12)
  - APNOEA [None]
  - CARDIO-RESPIRATORY ARREST [None]
  - DEPRESSED LEVEL OF CONSCIOUSNESS [None]
  - ELECTROMECHANICAL DISSOCIATION [None]
  - ENCEPHALOPATHY [None]
  - GENERAL PHYSICAL HEALTH DETERIORATION [None]
  - KLEBSIELLA INFECTION [None]
  - PULSE ABSENT [None]
  - PULSE PRESSURE DECREASED [None]
  - RESPIRATORY DISORDER [None]
  - RHYTHM IDIOVENTRICULAR [None]
  - VENTRICULAR FIBRILLATION [None]
